FAERS Safety Report 20678117 (Version 1)
Quarter: 2022Q2

REPORT INFORMATION
  Report Type: Spontaneous
  Country: GB (occurrence: GB)
  Receive Date: 20220406
  Receipt Date: 20220406
  Transmission Date: 20220721
  Serious: Yes (Other)
  Sender: FDA-Public Use
  Company Number: None

PATIENT
  Age: 49 Year
  Sex: Female

DRUGS (4)
  1. GLATIRAMER ACETATE [Suspect]
     Active Substance: GLATIRAMER ACETATE
     Indication: Product used for unknown indication
     Dosage: 40 MILLIGRAM, 3XW
     Route: 058
     Dates: start: 20210801
  2. AMITRIPTYLINE [Concomitant]
     Active Substance: AMITRIPTYLINE
     Dosage: 10 MILLIGRAM, QD,1-2 HOURS BEFORE BED
     Route: 048
  3. NEVANAC [Concomitant]
     Active Substance: NEPAFENAC
     Dosage: 1 DOSAGE FORM, BID, 1MG/ML INTO RIGHT EYE
  4. Salofalk [Concomitant]
     Dosage: 3 GRAM, QD

REACTIONS (1)
  - Scleroderma [Not Recovered/Not Resolved]

NARRATIVE: CASE EVENT DATE: 20210908
